FAERS Safety Report 6783428-4 (Version None)
Quarter: 2010Q2

REPORT INFORMATION
  Report Type: 
  Country: None (occurrence: None)
  Receive Date: 20100622
  Receipt Date: 20100608
  Transmission Date: 20101027
  Serious: Yes (Death, Life-Threatening)
  Sender: FDA-Public Use
  Company Number: DE-PFIZER INC-2010076328

PATIENT
  Age: 80 Year
  Sex: Male

DRUGS (4)
  1. ARGATROBAN [Suspect]
     Indication: HEPARIN-INDUCED THROMBOCYTOPENIA
     Dosage: TOTAL DRUG ADMINISTERED: 61.9 MG (0.056 - 0.111 UG/KG/MIN)
     Route: 042
     Dates: start: 20100217, end: 20100222
  2. ARTERENOL [Concomitant]
     Dosage: 6 ML/HR
     Dates: start: 20100220, end: 20100222
  3. SUPRARENIN [Concomitant]
     Dosage: 8.5 ML/HR
     Dates: start: 20100220, end: 20100222
  4. COROTROP [Concomitant]
     Dosage: 8.5  ML/HR
     Route: 065
     Dates: start: 20100220, end: 20100222

REACTIONS (1)
  - CARDIOGENIC SHOCK [None]
